FAERS Safety Report 4341477-X (Version None)
Quarter: 2004Q2

REPORT INFORMATION
  Report Type: 
  Country: None (occurrence: None)
  Receive Date: 20040415
  Receipt Date: 20040331
  Transmission Date: 20050107
  Serious: Yes (Hospitalization)
  Sender: FDA-Public Use
  Company Number: 430022K04USA

PATIENT
  Age: 40 Year
  Sex: Female

DRUGS (1)
  1. NOVANTRONE [Suspect]
     Indication: MULTIPLE SCLEROSIS

REACTIONS (7)
  - ALOPECIA [None]
  - BALANCE DISORDER [None]
  - CONFUSIONAL STATE [None]
  - FATIGUE [None]
  - LOCALISED INFECTION [None]
  - OPEN WOUND [None]
  - WHITE BLOOD CELL COUNT DECREASED [None]
